FAERS Safety Report 17965077 (Version 1)
Quarter: 2020Q2

REPORT INFORMATION
  Report Type: Spontaneous
  Country: US (occurrence: US)
  Receive Date: 20200630
  Receipt Date: 20200630
  Transmission Date: 20200714
  Serious: Yes (Other)
  Sender: FDA-Public Use
  Company Number: US-JNJFOC-20200632606

PATIENT

DRUGS (1)
  1. BENADRYL [Suspect]
     Active Substance: DIPHENHYDRAMINE HYDROCHLORIDE
     Indication: PRODUCT USED FOR UNKNOWN INDICATION
     Dosage: 24 PILLS OVER THE COURSE OF 2 HOURS, FIRST HOUR 12, SECOND HOUR ANOTHER 12
     Route: 065

REACTIONS (5)
  - Hallucination, visual [Unknown]
  - Intentional overdose [Unknown]
  - Hallucination, auditory [Unknown]
  - Delirium [Unknown]
  - Euphoric mood [Unknown]
